FAERS Safety Report 10465977 (Version 1)
Quarter: 2014Q3

REPORT INFORMATION
  Report Type: Not Available
  Country: US (occurrence: US)
  Receive Date: 20140922
  Receipt Date: 20140922
  Transmission Date: 20150326
  Serious: No
  Sender: FDA-Public Use
  Company Number: US-LUPIN PHARMACEUTICALS INC.-2014-00837

PATIENT
  Sex: Female

DRUGS (1)
  1. CEFUROXIME. [Suspect]
     Active Substance: CEFUROXIME
     Indication: PRODUCT USED FOR UNKNOWN INDICATION
     Route: 065

REACTIONS (6)
  - Abdominal discomfort [Unknown]
  - Coeliac disease [Unknown]
  - Diarrhoea [Unknown]
  - Arthralgia [Unknown]
  - Swelling [Unknown]
  - Flatulence [Unknown]
